FAERS Safety Report 6212135-1 (Version None)
Quarter: 2009Q2

REPORT INFORMATION
  Report Type: 
  Country: None (occurrence: None)
  Receive Date: 20090602
  Receipt Date: 20090529
  Transmission Date: 20091009
  Serious: Yes (Death)
  Sender: FDA-Public Use
  Company Number: PHHY2009JP21211

PATIENT

DRUGS (2)
  1. DIOVAN [Suspect]
     Indication: HYPERTENSION
     Dosage: 80 MG, QD
     Route: 048
  2. BENZBROMARONE [Concomitant]
     Dosage: 200 MG, UNK
     Route: 048

REACTIONS (1)
  - HEPATITIS FULMINANT [None]
